FAERS Safety Report 26184624 (Version 1)
Quarter: 2025Q4

REPORT INFORMATION
  Report Type: Spontaneous
  Country: US (occurrence: US)
  Receive Date: 20251222
  Receipt Date: 20251222
  Transmission Date: 20260118
  Serious: No
  Sender: CELLTRION
  Company Number: US-CELLTRION INC.-2025US017694

PATIENT

DRUGS (1)
  1. TRUXIMA [Suspect]
     Active Substance: RITUXIMAB-ABBS
     Indication: Henoch-Schonlein purpura
     Dosage: 1000 MG
     Dates: start: 20250304

REACTIONS (2)
  - Henoch-Schonlein purpura [Unknown]
  - Off label use [Unknown]
